FAERS Safety Report 16320553 (Version 1)
Quarter: 2019Q2

REPORT INFORMATION
  Report Type: Spontaneous
  Country: US (occurrence: US)
  Receive Date: 20190516
  Receipt Date: 20190516
  Transmission Date: 20190711
  Serious: Yes (Other)
  Sender: FDA-Public Use
  Company Number: US-PERRIGO-19US002557

PATIENT
  Age: 66 Year
  Sex: Female
  Weight: 39 kg

DRUGS (4)
  1. LICE SHAMPOO [Suspect]
     Active Substance: PIPERONYL BUTOXIDE\PYRETHRUM EXTRACT
     Indication: PROPHYLAXIS
     Dosage: UNK, TWICE
     Route: 061
     Dates: start: 201910, end: 201910
  2. LICE SHAMPOO [Suspect]
     Active Substance: PIPERONYL BUTOXIDE\PYRETHRUM EXTRACT
     Dosage: UNK, SINGLE
     Route: 061
     Dates: start: 20190205, end: 20190205
  3. LICE SHAMPOO [Suspect]
     Active Substance: PIPERONYL BUTOXIDE\PYRETHRUM EXTRACT
     Dosage: UNK, SINGLE
     Route: 061
     Dates: start: 20190210, end: 20190210
  4. VITAMINS NOS [Concomitant]
     Active Substance: VITAMINS
     Indication: SUPPLEMENTATION THERAPY
     Dosage: UNK
     Route: 065

REACTIONS (5)
  - Eye pain [Recovering/Resolving]
  - Inappropriate schedule of product administration [Recovered/Resolved with Sequelae]
  - Off label use [Recovered/Resolved with Sequelae]
  - Vision blurred [Not Recovered/Not Resolved]
  - Eye burns [Recovering/Resolving]

NARRATIVE: CASE EVENT DATE: 201902
